FAERS Safety Report 9153989 (Version 1)
Quarter: 2013Q1

REPORT INFORMATION
  Report Type: Spontaneous
  Country: US (occurrence: None)
  Receive Date: 20130308
  Receipt Date: 20130308
  Transmission Date: 20140127
  Serious: Yes (Life-Threatening, Hospitalization)
  Sender: FDA-Public Use
  Company Number: None

PATIENT
  Age: 77 Year
  Sex: Female

DRUGS (12)
  1. LISINOPRIL 40MG [Suspect]
     Indication: HYPERTENSION
     Route: 048
     Dates: start: 20121017, end: 20130222
  2. WELLBUTRIN XL [Concomitant]
  3. AMLODIPINE [Concomitant]
  4. HYDRALAZINE [Concomitant]
  5. ASPIRIN [Concomitant]
  6. TRIAMTERENE/HCTZ [Concomitant]
  7. ESTROGEN [Concomitant]
  8. OMEPRAZOLE [Concomitant]
  9. LEVOTHYROXINE [Concomitant]
  10. AMITRIPTYLINE [Concomitant]
  11. TRAVOPROST [Concomitant]
  12. PREDNISOLONE EYE DROPS [Concomitant]

REACTIONS (3)
  - Swollen tongue [None]
  - Palatal oedema [None]
  - Dysphagia [None]
